FAERS Safety Report 9424238 (Version 2)
Quarter: 2014Q1

REPORT INFORMATION
  Report Type: Spontaneous
  Country: BR (occurrence: BR)
  Receive Date: 20130729
  Receipt Date: 20140110
  Transmission Date: 20141002
  Serious: Yes (Other)
  Sender: FDA-Public Use
  Company Number: BR-JNJFOC-20130713068

PATIENT
  Age: 72 Year
  Sex: Male

DRUGS (16)
  1. ZYTIGA [Suspect]
     Indication: PROSTATE CANCER
     Route: 048
     Dates: start: 201307
  2. PREDNISONE [Suspect]
     Indication: PROSTATE CANCER
     Route: 065
  3. ZOLENDRONIC ACID [Suspect]
     Indication: PROSTATE CANCER
     Route: 042
  4. BICALUTAMIDE [Suspect]
     Indication: PROSTATE CANCER
     Dosage: FOR ONE MONTH
     Route: 065
  5. BICALUTAMIDE [Suspect]
     Indication: PROSTATE CANCER
     Route: 065
  6. DOCETAXEL [Suspect]
     Indication: PROSTATE CANCER
     Route: 042
  7. DOCETAXEL [Suspect]
     Indication: PROSTATE CANCER
     Route: 042
  8. CARBOPLATIN [Suspect]
     Indication: PROSTATE CANCER
     Dosage: AT AREA UNDER CURVE OF 4
     Route: 042
     Dates: start: 201205, end: 201205
  9. CARBOPLATIN [Suspect]
     Indication: PROSTATE CANCER
     Dosage: AT AREA UNDER CURVE OF 4
     Route: 042
     Dates: start: 201205, end: 201205
  10. CARBOPLATIN [Suspect]
     Indication: PROSTATE CANCER
     Dosage: AT AREA UNDER CURVE OF 4
     Route: 042
     Dates: start: 201205, end: 201205
  11. CARBOPLATIN [Suspect]
     Indication: PROSTATE CANCER
     Dosage: AT AREA UNDER CURVE OF 4
     Route: 042
     Dates: start: 201205, end: 201205
  12. CARBOPLATIN [Suspect]
     Indication: PROSTATE CANCER
     Dosage: AT AREA UNDER CURVE OF 4
     Route: 042
     Dates: start: 201205, end: 201205
  13. CARBOPLATIN [Suspect]
     Indication: PROSTATE CANCER
     Dosage: AT AREA UNDER CURVE OF 4
     Route: 042
     Dates: start: 201205, end: 201205
  14. CARBOPLATIN [Suspect]
     Indication: PROSTATE CANCER
     Dosage: AT  AREA UNDER CURVE  OF 5
     Route: 042
  15. GOSERELIN [Concomitant]
     Indication: PROSTATE CANCER
     Route: 058
  16. GOSERELIN [Concomitant]
     Indication: PROSTATE CANCER
     Route: 058

REACTIONS (6)
  - Periorbital oedema [Recovering/Resolving]
  - Metastatic neoplasm [Unknown]
  - Haematotoxicity [Unknown]
  - Neutropenia [Unknown]
  - Prostatic specific antigen abnormal [Recovering/Resolving]
  - Hyperglycaemia [Not Recovered/Not Resolved]
